FAERS Safety Report 5352601-4 (Version None)
Quarter: 2007Q2

REPORT INFORMATION
  Report Type: 
  Country: None (occurrence: None)
  Receive Date: 20070611
  Receipt Date: 20070531
  Transmission Date: 20071010
  Serious: Yes (Hospitalization)
  Sender: FDA-Public Use
  Company Number: JP-ROCHE-500894

PATIENT
  Age: 67 Year
  Sex: Male

DRUGS (3)
  1. TAMIFLU [Suspect]
     Route: 048
     Dates: start: 20070320, end: 20070322
  2. LOXONIN [Concomitant]
     Dosage: GENERIC NAME REPORTED AS LOXOPROFEN SODIUM.
  3. MUCOSTA [Concomitant]

REACTIONS (1)
  - INTERSTITIAL LUNG DISEASE [None]
